FAERS Safety Report 9308356 (Version 1)
Quarter: 2013Q2

REPORT INFORMATION
  Report Type: Spontaneous
  Country: US (occurrence: US)
  Receive Date: 20130524
  Receipt Date: 20130524
  Transmission Date: 20140414
  Serious: No
  Sender: FDA-Public Use
  Company Number: US-B.I. PHARMACEUTICALS,INC./RIDGEFIELD-2013-BI-14279BP

PATIENT
  Age: 79 Year
  Sex: Male
  Weight: 113 kg

DRUGS (3)
  1. COMBIVENT [Suspect]
     Dosage: STRENGTH: 18 MCG / 103 MCG; DAILY DOSE: 144 MCG/ 824 MCG
     Route: 055
     Dates: start: 2010, end: 20130422
  2. COMBIVENT [Suspect]
     Dosage: STRENGTH: 20 MCG / 100 MCG; DAILY DOSE: 80 MCG/ 400 MCG
     Route: 055
     Dates: start: 20130422
  3. ASPIRIN [Concomitant]
     Dosage: 81 MG
     Route: 048

REACTIONS (3)
  - Pulmonary congestion [Not Recovered/Not Resolved]
  - Dyspnoea [Recovered/Resolved]
  - Blood glucose increased [Not Recovered/Not Resolved]
